FAERS Safety Report 7304869-2 (Version None)
Quarter: 2011Q1

REPORT INFORMATION
  Report Type: 
  Country: None (occurrence: None)
  Receive Date: 20110222
  Receipt Date: 20110214
  Transmission Date: 20110831
  Serious: Yes (Hospitalization)
  Sender: FDA-Public Use
  Company Number: IE-US-EMD SERONO, INC.-7015706

PATIENT
  Sex: Female

DRUGS (5)
  1. NAUDICELLE [Concomitant]
     Route: 048
     Dates: start: 20090522
  2. REBIF [Suspect]
     Indication: RELAPSING-REMITTING MULTIPLE SCLEROSIS
     Dates: start: 20070420
  3. MAXILIFE [Concomitant]
     Route: 048
     Dates: start: 20080512
  4. NORINYL 1+35 28-DAY [Concomitant]
     Route: 048
     Dates: start: 20071129
  5. LYRICA [Concomitant]
     Route: 048
     Dates: start: 20080515

REACTIONS (3)
  - MULTIPLE SCLEROSIS RELAPSE [None]
  - GAIT DISTURBANCE [None]
  - ALLODYNIA [None]
